FAERS Safety Report 5164986-2 (Version None)
Quarter: 2006Q4

REPORT INFORMATION
  Report Type: 
  Country: None (occurrence: None)
  Receive Date: 20061124
  Receipt Date: 20061116
  Transmission Date: 20070319
  Serious: Yes (Other)
  Sender: FDA-Public Use
  Company Number: 2006134351

PATIENT
  Age: 21 Year
  Sex: Male
  Weight: 130 kg

DRUGS (1)
  1. ZIPRASIDONE HCL [Suspect]
     Dosage: 40 MG (1 IN 1 D), ORAL
     Route: 048
     Dates: start: 20060613, end: 20060616

REACTIONS (3)
  - EXTRAPYRAMIDAL DISORDER [None]
  - GAZE PALSY [None]
  - MUSCLE SPASMS [None]
